FAERS Safety Report 7307236-0 (Version None)
Quarter: 2011Q1

REPORT INFORMATION
  Report Type: 
  Country: None (occurrence: None)
  Receive Date: 20110223
  Receipt Date: 20110210
  Transmission Date: 20110831
  Serious: No
  Sender: FDA-Public Use
  Company Number: US-PFIZER INC-2011005023

PATIENT
  Sex: Female
  Weight: 113 kg

DRUGS (4)
  1. XALATAN [Suspect]
     Indication: GLAUCOMA
     Dosage: 1 DROP IN EACH EYE DAILY
     Route: 047
     Dates: start: 20100801
  2. BENADRYL [Concomitant]
     Indication: MULTIPLE ALLERGIES
     Dosage: 25 MG TO 50 MG DAILY; SOMETIMES TWO TIMES A DAY
  3. GENTEAL [Concomitant]
     Dosage: UNK
  4. ASPIRIN [Concomitant]

REACTIONS (5)
  - DIZZINESS [None]
  - TREATMENT NONCOMPLIANCE [None]
  - OCULAR HYPERAEMIA [None]
  - INAPPROPRIATE SCHEDULE OF DRUG ADMINISTRATION [None]
  - DRY EYE [None]
